FAERS Safety Report 17837360 (Version 2)
Quarter: 2020Q2

REPORT INFORMATION
  Report Type: Report from Study
  Country: US (occurrence: US)
  Receive Date: 20200529
  Receipt Date: 20200605
  Transmission Date: 20200714
  Serious: Yes (Hospitalization, Other)
  Sender: FDA-Public Use
  Company Number: US-AUROBINDO-AUR-APL-2020-026012

PATIENT
  Age: 41 Year
  Sex: Female

DRUGS (5)
  1. VASOPRESSIN. [Suspect]
     Active Substance: VASOPRESSIN
     Indication: PRODUCT USED FOR UNKNOWN INDICATION
     Dosage: UNK 5 UNITS
     Route: 065
  2. FENTANYL. [Suspect]
     Active Substance: FENTANYL
     Indication: ANAESTHESIA
     Dosage: UNK
     Route: 042
  3. METHOHEXITAL [Suspect]
     Active Substance: METHOHEXITAL
     Indication: ANAESTHESIA
     Dosage: UNK
     Route: 042
  4. MIDAZOLAM. [Suspect]
     Active Substance: MIDAZOLAM
     Indication: ANAESTHESIA
     Dosage: UNK
     Route: 042
  5. LIDOCAINE. [Suspect]
     Active Substance: LIDOCAINE
     Indication: ANAESTHESIA
     Dosage: 20 MILLILITER (20 CC)
     Route: 042

REACTIONS (7)
  - Hypotension [Recovered/Resolved]
  - Haemorrhage [Recovered/Resolved]
  - Bradycardia [Recovered/Resolved]
  - Disseminated intravascular coagulation [Recovered/Resolved]
  - Toxicity to various agents [Recovered/Resolved]
  - Oxygen saturation decreased [Recovered/Resolved]
  - Ventricular extrasystoles [Recovered/Resolved]
